FAERS Safety Report 4913605-6 (Version None)
Quarter: 2006Q1

REPORT INFORMATION
  Report Type: 
  Country: None (occurrence: None)
  Receive Date: 20060214
  Receipt Date: 20060214
  Transmission Date: 20060701
  Serious: Yes (Hospitalization)
  Sender: FDA-Public Use
  Company Number: None

PATIENT
  Sex: Male

DRUGS (8)
  1. WARFARIN 10 MG [Suspect]
     Dosage: 1 TAB DAILY PO
     Route: 048
     Dates: start: 20051019, end: 20051104
  2. ASPIRIN [Suspect]
     Dosage: PO
     Route: 048
     Dates: start: 20051019, end: 20051104
  3. DARVON [Concomitant]
  4. ATENOLOL [Concomitant]
  5. ALEVE [Concomitant]
  6. LISINOPRIL [Concomitant]
  7. ASPIRIN [Concomitant]
  8. HYDROCHLOROTHIAZIDE [Concomitant]

REACTIONS (2)
  - COAGULOPATHY [None]
  - HAEMORRHAGE [None]
